FAERS Safety Report 18620391 (Version 2)
Quarter: 2021Q1

REPORT INFORMATION
  Report Type: Spontaneous
  Country: US (occurrence: US)
  Receive Date: 20201215
  Receipt Date: 20210105
  Transmission Date: 20210419
  Serious: Yes (Death, Life-Threatening, Other)
  Sender: FDA-Public Use
  Company Number: US-009507513-2012USA004914

PATIENT
  Age: 58 Year
  Sex: Male
  Weight: 76.7 kg

DRUGS (1)
  1. KEYTRUDA [Suspect]
     Active Substance: PEMBROLIZUMAB
     Indication: MALIGNANT MELANOMA STAGE IV
     Dosage: 200 MILLIGRAM
     Route: 042
     Dates: start: 20201204, end: 20201204

REACTIONS (3)
  - Malignant neoplasm progression [Fatal]
  - Cerebrovascular accident [Unknown]
  - COVID-19 [Not Recovered/Not Resolved]

NARRATIVE: CASE EVENT DATE: 20201204
